FAERS Safety Report 12477728 (Version 2)
Quarter: 2016Q3

REPORT INFORMATION
  Report Type: Report from Study
  Country: CA (occurrence: CA)
  Receive Date: 20160617
  Receipt Date: 20160714
  Transmission Date: 20161109
  Serious: Yes (Hospitalization, Disabling, Other)
  Sender: FDA-Public Use
  Company Number: CA-009507513-1606CAN006381

PATIENT
  Age: 75 Year
  Sex: Female

DRUGS (17)
  1. LANTUS [Concomitant]
     Active Substance: INSULIN GLARGINE
     Dosage: STRENGTH: 100 UNITS/ML
     Dates: start: 20160421
  2. BISOPROLOL [Concomitant]
     Active Substance: BISOPROLOL
     Dosage: 0.5 TABLET, HS
     Route: 048
     Dates: start: 20150629
  3. AMLODIPINE [Concomitant]
     Active Substance: AMLODIPINE BESYLATE
     Dosage: 1 TABLET (5 MG), QD
     Route: 048
     Dates: start: 20141202
  4. ZAROXOLYN [Concomitant]
     Active Substance: METOLAZONE
     Indication: URINE OUTPUT
     Dosage: 1 TABLET (2.5 MG), Q MORNING, PRN, 30 MINUTES PRIOR TO MORNING LASIX PRN
     Route: 048
     Dates: start: 20160421
  5. FERROUS FUMARATE [Concomitant]
     Active Substance: FERROUS FUMARATE
     Dosage: 1 CAPSULE (300 MG), BID
     Route: 048
     Dates: start: 20141010
  6. RANITIDINE. [Concomitant]
     Active Substance: RANITIDINE
     Dosage: 1 TABLET (150 MG), BID
     Route: 048
     Dates: start: 20160421
  7. HUMALOG [Concomitant]
     Active Substance: INSULIN LISPRO
     Dosage: 15 UNITS, BEFORE BREAKFAST
     Route: 058
     Dates: start: 20150721
  8. HUMALOG [Concomitant]
     Active Substance: INSULIN LISPRO
     Dosage: 20 UNITS, BEFORE LUNCH
     Route: 058
     Dates: start: 20150721
  9. NITROGLYCERIN. [Concomitant]
     Active Substance: NITROGLYCERIN
     Dosage: 1 PATCH, DAILY (STRENGTH: 0.4 MG/HR)
     Route: 062
  10. HUMALOG [Concomitant]
     Active Substance: INSULIN LISPRO
     Dosage: 5 UNITS, BEFORE SUPPER
     Route: 058
     Dates: start: 20150721
  11. CLOPIDOGREL [Concomitant]
     Active Substance: CLOPIDOGREL BISULFATE
     Dosage: 1 TABLET (75 MG), QD
     Route: 048
     Dates: start: 20150628
  12. DOXEPIN HYDROCHLORIDE. [Concomitant]
     Active Substance: DOXEPIN HYDROCHLORIDE
     Dosage: 10 MG, QD
     Route: 048
     Dates: start: 20160303
  13. ASPIRIN. [Concomitant]
     Active Substance: ASPIRIN
     Dosage: 81 MG, QD
     Route: 048
  14. ZEPATIER [Suspect]
     Active Substance: ELBASVIR\GRAZOPREVIR
     Indication: HEPATITIS C
     Dosage: 100/50 MG DAILY
     Route: 048
     Dates: start: 20160502, end: 201607
  15. NITROGLYCERIN. [Concomitant]
     Active Substance: NITROGLYCERIN
     Indication: CHEST PAIN
     Dosage: 1 SPRAY, PRN; FORMULATION: SUBLINGUAL SPRAY
     Route: 060
  16. LASIX [Concomitant]
     Active Substance: FUROSEMIDE
     Dosage: 3 TABLETS (40 MG), BID
     Route: 048
     Dates: start: 20140721
  17. ATORVASTATIN [Concomitant]
     Active Substance: ATORVASTATIN
     Dosage: 1 TABLET (10 MG), HS
     Route: 048
     Dates: start: 20130605

REACTIONS (1)
  - Myocardial ischaemia [Not Recovered/Not Resolved]

NARRATIVE: CASE EVENT DATE: 20160522
